FAERS Safety Report 10244930 (Version 1)
Quarter: 2014Q2

REPORT INFORMATION
  Report Type: Spontaneous
  Country: US (occurrence: US)
  Receive Date: 20140618
  Receipt Date: 20140618
  Transmission Date: 20141212
  Serious: No
  Sender: FDA-Public Use
  Company Number: US-GALDERMA-US14000832

PATIENT
  Age: 64 Year
  Sex: Male

DRUGS (8)
  1. MIRVASO (BRIMONIDINE) TOPICAL GEL, 0.33% [Suspect]
     Indication: ROSACEA
     Dosage: 0.33%
     Route: 061
     Dates: start: 20140206, end: 20140225
  2. NEUTROGENA SENSITIVE FACE WASH [Concomitant]
     Indication: THERAPEUTIC SKIN CARE TOPICAL
     Route: 061
     Dates: start: 2013
  3. NEUTROGENA MOISTURIZER WITH SUN BLOCK [Concomitant]
     Indication: DRY SKIN PROPHYLAXIS
     Route: 061
     Dates: start: 2008
  4. NEUTROGENA MOISTURIZER WITH SUN BLOCK [Concomitant]
     Indication: PROPHYLAXIS AGAINST SOLAR RADIATION
  5. FINACEA (AZELAIC ACID) 15% [Concomitant]
     Indication: ROSACEA
     Dosage: 15%
     Route: 061
     Dates: start: 2004
  6. TOPROL XL [Concomitant]
  7. LISINOPRIL [Concomitant]
     Dosage: 20 MG
  8. AMOXICILLIN [Concomitant]
     Dosage: 250 MG

REACTIONS (4)
  - Condition aggravated [Recovered/Resolved]
  - Feeling cold [Recovered/Resolved]
  - Rebound effect [Recovered/Resolved]
  - Erythema [Recovered/Resolved]
